FAERS Safety Report 6292855-3 (Version None)
Quarter: 2009Q3

REPORT INFORMATION
  Report Type: 
  Country: None (occurrence: None)
  Receive Date: 20090731
  Receipt Date: 20090721
  Transmission Date: 20100115
  Serious: Yes (Other)
  Sender: FDA-Public Use
  Company Number: PHHY2009JP13551

PATIENT
  Sex: Male

DRUGS (3)
  1. ZOLEDRONATE T29581+ [Suspect]
     Indication: METASTASES TO BONE
     Dosage: 4 MG, QMO
     Route: 042
     Dates: start: 20070830, end: 20080604
  2. CASODEX [Concomitant]
     Indication: PROSTATE CANCER
     Dosage: 80 MG, UNK
     Route: 048
     Dates: start: 20070813, end: 20080827
  3. ZOLADEX [Concomitant]
     Indication: PROSTATE CANCER
     Dosage: 30 (UNITS NOT SPECIFIED)
     Route: 042
     Dates: start: 20070830, end: 20080827

REACTIONS (4)
  - BLOOD UREA INCREASED [None]
  - BONE DISORDER [None]
  - SINUSITIS [None]
  - TOOTHACHE [None]
